FAERS Safety Report 20430118 (Version 1)
Quarter: 2022Q1

REPORT INFORMATION
  Report Type: Spontaneous
  Country: US (occurrence: US)
  Receive Date: 20220204
  Receipt Date: 20220204
  Transmission Date: 20220424
  Serious: Yes (Other)
  Sender: FDA-Public Use
  Company Number: US-JNJFOC-20220162229

PATIENT
  Sex: Female

DRUGS (5)
  1. XARELTO [Suspect]
     Active Substance: RIVAROXABAN
     Indication: Pulmonary embolism
     Dosage: SERIAL NUMBER 100031391696
     Route: 048
     Dates: start: 202111
  2. LOSARTAN [Concomitant]
     Active Substance: LOSARTAN
     Indication: Product used for unknown indication
     Route: 065
  3. HYDROCHLOROTHIAZIDE [Concomitant]
     Active Substance: HYDROCHLOROTHIAZIDE
     Indication: Product used for unknown indication
     Route: 065
  4. ATENOLOL [Concomitant]
     Active Substance: ATENOLOL
     Indication: Product used for unknown indication
     Route: 065
  5. CORTISONE\HYDROCORTISONE [Concomitant]
     Active Substance: CORTISONE\HYDROCORTISONE
     Indication: Product used for unknown indication
     Route: 065

REACTIONS (5)
  - Pulmonary embolism [Recovering/Resolving]
  - Arteriosclerosis [Unknown]
  - Cardiomegaly [Unknown]
  - Aortic dissection [Unknown]
  - Product label issue [Unknown]

NARRATIVE: CASE EVENT DATE: 20220124
